FAERS Safety Report 9006445 (Version 1)
Quarter: 2013Q1

REPORT INFORMATION
  Report Type: Spontaneous
  Country: GB (occurrence: None)
  Receive Date: 20121227
  Receipt Date: 20121227
  Transmission Date: 20140127
  Serious: Yes (Hospitalization)
  Sender: FDA-Public Use
  Company Number: 2012-01794

PATIENT
  Age: 86 Year
  Sex: Female

DRUGS (3)
  1. LOSARTAN (LOSARTAN) [Suspect]
     Indication: HYPERTENSION
     Route: 048
  2. INDAPAMIDE (UNKNOWN) [Suspect]
     Indication: HYPERTENSION
     Route: 048
  3. TRAMADOL [Suspect]
     Indication: PRODUCT USED FOR UNKNOWN INDICATION

REACTIONS (4)
  - Confusional state [None]
  - Dehydration [None]
  - Fall [None]
  - Orthostatic hypotension [None]
